FAERS Safety Report 5287848-9 (Version None)
Quarter: 2007Q2

REPORT INFORMATION
  Report Type: 
  Country: None (occurrence: None)
  Receive Date: 20070405
  Receipt Date: 20070403
  Transmission Date: 20071010
  Serious: Yes (Life-Threatening)
  Sender: FDA-Public Use
  Company Number: JP-BAYER-200710178BYL

PATIENT
  Age: 42 Year
  Sex: Female
  Weight: 45 kg

DRUGS (3)
  1. ADALAT [Suspect]
     Indication: SUICIDE ATTEMPT
     Route: 048
     Dates: start: 20070306, end: 20070306
  2. DOPAMINE HCL [Concomitant]
     Route: 042
     Dates: start: 20070306, end: 20070306
  3. NOR-ADRENALIN [Concomitant]
     Route: 042
     Dates: start: 20070306, end: 20070307

REACTIONS (1)
  - SHOCK [None]
